FAERS Safety Report 7481826-7 (Version None)
Quarter: 2011Q2

REPORT INFORMATION
  Report Type: 
  Country: None (occurrence: None)
  Receive Date: 20110516
  Receipt Date: 20110504
  Transmission Date: 20111010
  Serious: Yes (Other)
  Sender: FDA-Public Use
  Company Number: CA-JNJFOC-20101206907

PATIENT
  Age: 40 Year
  Sex: Female

DRUGS (2)
  1. MICRONOR [Suspect]
     Indication: PRODUCT USED FOR UNKNOWN INDICATION
     Route: 048
     Dates: start: 20100601
  2. MICRONOR [Suspect]
     Route: 048

REACTIONS (2)
  - CYST [None]
  - HEADACHE [None]
